FAERS Safety Report 9217539 (Version 1)
Quarter: 2013Q2

REPORT INFORMATION
  Report Type: Report from Study
  Country: ID (occurrence: ID)
  Receive Date: 20130408
  Receipt Date: 20130408
  Transmission Date: 20140414
  Serious: Yes (Death, Hospitalization, Other)
  Sender: FDA-Public Use
  Company Number: ID-ROCHE-1211419

PATIENT
  Age: 50 Year
  Sex: Male

DRUGS (5)
  1. CYCLOPHOSPHAMIDE [Concomitant]
     Indication: NON-HODGKIN^S LYMPHOMA
  2. DOXORUBICINE [Concomitant]
     Indication: NON-HODGKIN^S LYMPHOMA
  3. VINCRISTINE [Concomitant]
     Indication: NON-HODGKIN^S LYMPHOMA
  4. PREDNISONE [Concomitant]
     Indication: NON-HODGKIN^S LYMPHOMA
  5. MABTHERA [Suspect]
     Indication: NON-HODGKIN^S LYMPHOMA
     Route: 042
     Dates: start: 20130220

REACTIONS (2)
  - Disease progression [Fatal]
  - Decreased appetite [Unknown]
